FAERS Safety Report 10142754 (Version 1)
Quarter: 2014Q2

REPORT INFORMATION
  Report Type: Report from Study
  Country: NO (occurrence: None)
  Receive Date: 20140428
  Receipt Date: 20140428
  Transmission Date: 20141212
  Serious: Yes (Congenital Anomaly)
  Sender: FDA-Public Use
  Company Number: 2306664

PATIENT
  Sex: Male

DRUGS (4)
  1. LEVETIRACETAM [Suspect]
     Indication: EPILEPSY
     Dosage: DAILY DOSE: 1000 (UNITS UNSPECIFIED)
     Route: 064
     Dates: start: 2010
  2. CLONAZEPAM [Suspect]
     Indication: EPILEPSY
     Route: 064
  3. VALPROIC ACID [Suspect]
     Indication: EPILEPSY
     Route: 064
     Dates: start: 2010
  4. LAMOTRIGINE [Suspect]
     Indication: EPILEPSY
     Route: 064
     Dates: start: 2010

REACTIONS (3)
  - Developmental hip dysplasia [None]
  - Monorchidism [None]
  - Maternal drugs affecting foetus [None]
